FAERS Safety Report 16825706 (Version 1)
Quarter: 2019Q3

REPORT INFORMATION
  Report Type: Spontaneous
  Country: US (occurrence: US)
  Receive Date: 20190919
  Receipt Date: 20190919
  Transmission Date: 20191005
  Serious: No
  Sender: FDA-Public Use
  Company Number: US-SCIEGEN PHARMACEUTICALS INC-2019SCISPO00259

PATIENT
  Age: 26 Year

DRUGS (1)
  1. BUPROPION HYDROCHLORIDE. [Suspect]
     Active Substance: BUPROPION HYDROCHLORIDE

REACTIONS (8)
  - Fear of death [Recovering/Resolving]
  - Failed examinations [None]
  - Drug ineffective [Recovering/Resolving]
  - Product substitution issue [Unknown]
  - Feeling abnormal [Recovering/Resolving]
  - Heart rate increased [Recovering/Resolving]
  - Condition aggravated [Recovering/Resolving]
  - Panic attack [Recovering/Resolving]
